FAERS Safety Report 4743601-3 (Version None)
Quarter: 2005Q3

REPORT INFORMATION
  Report Type: 
  Country: None (occurrence: None)
  Receive Date: 20050812
  Receipt Date: 20050201
  Transmission Date: 20060218
  Serious: Yes (Death)
  Sender: FDA-Public Use
  Company Number: 200517126GDDC

PATIENT
  Sex: Female

DRUGS (1)
  1. ARAVA [Suspect]
     Dosage: DOSE: RECENTLY INCREASED NOS

REACTIONS (2)
  - LUNG DISORDER [None]
  - OXYGEN SATURATION DECREASED [None]
